FAERS Safety Report 19032731 (Version 1)
Quarter: 2021Q1

REPORT INFORMATION
  Report Type: Spontaneous
  Country: IN (occurrence: IN)
  Receive Date: 20210319
  Receipt Date: 20210319
  Transmission Date: 20210420
  Serious: Yes (Death, Other)
  Sender: FDA-Public Use
  Company Number: IN-PFIZER INC-2020485993

PATIENT
  Age: 52 Year
  Sex: Female

DRUGS (5)
  1. DENOSUMAB [Concomitant]
     Active Substance: DENOSUMAB
     Dosage: 120 MG (MONTHLY)
     Dates: start: 20201212
  2. PALBACE [Suspect]
     Active Substance: PALBOCICLIB
     Indication: BREAST CANCER METASTATIC
     Dosage: 125 MG, 1X/DAY
     Route: 048
     Dates: start: 20201024, end: 20210228
  3. VIVITRA [Concomitant]
     Dosage: 300 MG
     Dates: start: 20201128
  4. LETROZOLE. [Concomitant]
     Active Substance: LETROZOLE
     Dosage: 2.5 MG, 1X/DAY
     Dates: start: 20201029
  5. SHELCAL [CALCIUM;COLECALCIFEROL] [Concomitant]
     Active Substance: CALCIUM\CHOLECALCIFEROL
     Dosage: 500 MG, 2X/DAY

REACTIONS (6)
  - Death [Fatal]
  - Insomnia [Unknown]
  - Pruritus [Unknown]
  - Off label use [Unknown]
  - Product use issue [Unknown]
  - Breast pain [Recovering/Resolving]
